FAERS Safety Report 14179017 (Version 2)
Quarter: 2017Q4

REPORT INFORMATION
  Report Type: Spontaneous
  Country: AR (occurrence: AR)
  Receive Date: 20171110
  Receipt Date: 20171212
  Transmission Date: 20180321
  Serious: No
  Sender: FDA-Public Use
  Company Number: AR-PFIZER INC-2017481123

PATIENT
  Age: 54 Year
  Sex: Female

DRUGS (1)
  1. IBRANCE [Suspect]
     Active Substance: PALBOCICLIB
     Indication: BREAST CANCER METASTATIC
     Dosage: 125 MG, CYCLIC (DAILY, 3X1 SCHEDULE)
     Dates: start: 20170930

REACTIONS (6)
  - Decreased immune responsiveness [Not Recovered/Not Resolved]
  - Hypoaesthesia [Unknown]
  - Mouth injury [Unknown]
  - Nasal injury [Unknown]
  - Dry mouth [Unknown]
  - Epistaxis [Unknown]

NARRATIVE: CASE EVENT DATE: 2017
